FAERS Safety Report 22323051 (Version 1)
Quarter: 2023Q2

REPORT INFORMATION
  Report Type: Spontaneous
  Country: US (occurrence: US)
  Receive Date: 20230516
  Receipt Date: 20230516
  Transmission Date: 20230721
  Serious: No
  Sender: FDA-Public Use
  Company Number: US-APOTEX-2023AP005099

PATIENT
  Sex: Male

DRUGS (1)
  1. AZELASTINE HYDROCHLORIDE [Suspect]
     Active Substance: AZELASTINE HYDROCHLORIDE
     Indication: Sinusitis
     Dosage: 2 DOSAGE FORM, BID
     Route: 045
     Dates: start: 202303

REACTIONS (3)
  - Product dose omission issue [Unknown]
  - Product delivery mechanism issue [Unknown]
  - No adverse event [Unknown]

NARRATIVE: CASE EVENT DATE: 20230301
